APPROVED DRUG PRODUCT: CHLORPROMAZINE HYDROCHLORIDE
Active Ingredient: CHLORPROMAZINE HYDROCHLORIDE
Strength: 25MG/ML
Dosage Form/Route: INJECTABLE;INJECTION
Application: A218272 | Product #001 | TE Code: AP
Applicant: ASPIRO PHARMA LTD
Approved: Nov 18, 2024 | RLD: No | RS: No | Type: RX